FAERS Safety Report 12701904 (Version 1)
Quarter: 2016Q3

REPORT INFORMATION
  Report Type: Spontaneous
  Country: US (occurrence: None)
  Receive Date: 20160830
  Receipt Date: 20160830
  Transmission Date: 20161109
  Serious: No
  Sender: FDA-Public Use
  Company Number: None

PATIENT
  Age: 62 Year
  Sex: Female

DRUGS (1)
  1. REBIF [Suspect]
     Active Substance: INTERFERON BETA-1A
     Indication: MULTIPLE SCLEROSIS
     Route: 058
     Dates: start: 20070101, end: 20160829

REACTIONS (5)
  - Multiple sclerosis relapse [None]
  - Blindness [None]
  - Inflammation [None]
  - Optic nerve disorder [None]
  - Influenza [None]

NARRATIVE: CASE EVENT DATE: 20160617
